FAERS Safety Report 7269003-6 (Version None)
Quarter: 2011Q1

REPORT INFORMATION
  Report Type: 
  Country: None (occurrence: None)
  Receive Date: 20110202
  Receipt Date: 20110121
  Transmission Date: 20110831
  Serious: Yes (Hospitalization)
  Sender: FDA-Public Use
  Company Number: US-BIOGENIDEC-2009BI008322

PATIENT
  Sex: Female

DRUGS (2)
  1. TYSABRI [Suspect]
     Indication: MULTIPLE SCLEROSIS
     Route: 042
     Dates: start: 20071219, end: 20081219
  2. TYSABRI [Suspect]
     Route: 042
     Dates: start: 20090618

REACTIONS (15)
  - OVERWEIGHT [None]
  - ASTHENIA [None]
  - FEELING HOT [None]
  - PRURITUS [None]
  - MENTAL IMPAIRMENT [None]
  - BALANCE DISORDER [None]
  - MUSCULAR WEAKNESS [None]
  - NEURALGIA [None]
  - PAIN IN EXTREMITY [None]
  - ARTHRITIS [None]
  - EXERCISE TOLERANCE DECREASED [None]
  - FATIGUE [None]
  - DYSPNOEA [None]
  - HYPOAESTHESIA [None]
  - MULTIPLE SCLEROSIS [None]
